FAERS Safety Report 16971560 (Version 2)
Quarter: 2019Q4

REPORT INFORMATION
  Report Type: Spontaneous
  Country: US (occurrence: US)
  Receive Date: 20191029
  Receipt Date: 20191204
  Transmission Date: 20200122
  Serious: Yes (Other)
  Sender: FDA-Public Use
  Company Number: US-GILEAD-2019-0434793

PATIENT
  Age: 63 Year
  Sex: Male
  Weight: 102.04 kg

DRUGS (1)
  1. EPCLUSA [Suspect]
     Active Substance: SOFOSBUVIR\VELPATASVIR
     Indication: HEPATITIS C
     Dosage: 1 DOSAGE FORM
     Route: 065
     Dates: start: 20190614, end: 201909

REACTIONS (4)
  - Treatment failure [Unknown]
  - Drug resistance [Unknown]
  - Hepatitis C [Unknown]
  - Product dose omission [Unknown]

NARRATIVE: CASE EVENT DATE: 20191021
